FAERS Safety Report 12688231 (Version 1)
Quarter: 2016Q3

REPORT INFORMATION
  Report Type: Spontaneous
  Country: US (occurrence: None)
  Receive Date: 20160825
  Receipt Date: 20160825
  Transmission Date: 20161109
  Serious: Yes (Disabling)
  Sender: FDA-Public Use
  Company Number: None

PATIENT
  Age: 55 Year
  Sex: Female
  Weight: 66.68 kg

DRUGS (4)
  1. TRIAMTERENE AND HYDROCHLOROTHIAZIDE [Concomitant]
     Active Substance: HYDROCHLOROTHIAZIDE\TRIAMTERENE
  2. CRESTOR [Concomitant]
     Active Substance: ROSUVASTATIN CALCIUM
  3. ROSUVASTATIN 20 MG TAB, 20 MG ACTAVIS/ARROW PHARM [Suspect]
     Active Substance: ROSUVASTATIN
     Indication: BLOOD CHOLESTEROL INCREASED
     Route: 048
     Dates: start: 20160520, end: 20160731
  4. BYSTOLIC [Concomitant]
     Active Substance: NEBIVOLOL HYDROCHLORIDE

REACTIONS (9)
  - Ataxia [None]
  - Asthenia [None]
  - Nausea [None]
  - Vomiting [None]
  - Confusional state [None]
  - Impaired driving ability [None]
  - Dysgraphia [None]
  - Arthralgia [None]
  - Vertigo [None]

NARRATIVE: CASE EVENT DATE: 20160709
